FAERS Safety Report 7340700-7 (Version None)
Quarter: 2011Q1

REPORT INFORMATION
  Report Type: 
  Country: None (occurrence: None)
  Receive Date: 20110309
  Receipt Date: 20110307
  Transmission Date: 20110831
  Serious: Yes (Death, Other)
  Sender: FDA-Public Use
  Company Number: US-PFIZER INC-2011049579

PATIENT

DRUGS (1)
  1. LIPITOR [Suspect]

REACTIONS (2)
  - DEATH [None]
  - DIALYSIS [None]
